FAERS Safety Report 4704089-1 (Version None)
Quarter: 2005Q2

REPORT INFORMATION
  Report Type: 
  Country: None (occurrence: None)
  Receive Date: 20050629
  Receipt Date: 20050602
  Transmission Date: 20051028
  Serious: Yes (Life-Threatening, Hospitalization)
  Sender: FDA-Public Use
  Company Number: 05P-144-0302269-00

PATIENT
  Age: 21 Year
  Sex: Female

DRUGS (8)
  1. DEPACON [Suspect]
     Indication: CONVULSION PROPHYLAXIS
     Dosage: 1500.0 MG (500.0 MG, 3 IN 1 D) INTRAVENOUS
     Route: 042
     Dates: start: 20050302, end: 20050310
  2. CLORAZEPATE DIPOTASSIUM [Suspect]
     Indication: DRUG USE FOR UNKNOWN INDICATION
     Dosage: 10.0 MG (10.0 MG, 1 IN 1 D) ORAL
     Route: 048
     Dates: start: 20050302, end: 20050308
  3. METAMIZOLE MAGNESIUM [Suspect]
     Indication: PYREXIA
     Dosage: 2.0 MG, 3 IN 1 D INTRAVENOUS
     Route: 042
     Dates: start: 20050301, end: 20050308
  4. OMEPRAZOLE [Suspect]
     Dosage: 40.0 MG (40.0 MG, 1 IN 1 D)
     Dates: start: 20050302, end: 20050308
  5. ACETAMINOPHEN [Suspect]
     Dosage: 4.0 GM, 4 IN 1 D INTRAVENOUS
     Route: 042
     Dates: start: 20050302, end: 20050308
  6. KETOROLAC TROMETHAMINE [Suspect]
     Dosage: 90.0 MG, 3 IN 1 D INTRAVENOUS
     Route: 042
     Dates: start: 20050302, end: 20050308
  7. BUPRENORPHINE HCL [Concomitant]
  8. ONDANSETRON HYDROCHLORIDE [Concomitant]

REACTIONS (2)
  - CEREBROVASCULAR ARTERIOVENOUS MALFORMATION [None]
  - PANCYTOPENIA [None]
